FAERS Safety Report 18488046 (Version 3)
Quarter: 2021Q1

REPORT INFORMATION
  Report Type: Spontaneous
  Country: US (occurrence: US)
  Receive Date: 20201111
  Receipt Date: 20210322
  Transmission Date: 20210419
  Serious: Yes (Death, Hospitalization)
  Sender: FDA-Public Use
  Company Number: US-ROCHE-2710584

PATIENT
  Age: 65 Year
  Sex: Male
  Weight: 65.83 kg

DRUGS (3)
  1. ALECENSA [Suspect]
     Active Substance: ALECTINIB HYDROCHLORIDE
     Indication: PANCREATIC CARCINOMA
     Dosage: ONGOING: NO
     Route: 048
     Dates: start: 20200504, end: 2020
  2. ALECENSA [Suspect]
     Active Substance: ALECTINIB HYDROCHLORIDE
     Route: 048
     Dates: start: 202003, end: 20200624
  3. CLARITIN?D NOS [Concomitant]
     Active Substance: LORATADINE\PSEUDOEPHEDRINE SULFATE
     Indication: PAIN

REACTIONS (14)
  - Ill-defined disorder [Recovered/Resolved]
  - Weight decreased [Recovered/Resolved]
  - Respiratory failure [Fatal]
  - Respiratory disorder [Unknown]
  - Swelling [Recovered/Resolved]
  - Swelling of eyelid [Recovered/Resolved]
  - Lip discolouration [Recovered/Resolved]
  - Intentional product use issue [Unknown]
  - Peripheral swelling [Recovered/Resolved]
  - Asthenia [Recovered/Resolved]
  - Skin discolouration [Recovered/Resolved]
  - Ageusia [Recovered/Resolved]
  - Hypoaesthesia [Recovered/Resolved]
  - Off label use [Unknown]

NARRATIVE: CASE EVENT DATE: 202005
